FAERS Safety Report 23279344 (Version 1)
Quarter: 2023Q4

REPORT INFORMATION
  Report Type: Spontaneous
  Country: IT (occurrence: IT)
  Receive Date: 20231209
  Receipt Date: 20231209
  Transmission Date: 20240110
  Serious: Yes (Hospitalization, Other)
  Sender: FDA-Public Use
  Company Number: IT-DOCGEN-2307861

PATIENT
  Sex: Male

DRUGS (12)
  1. OLANZAPINE [Suspect]
     Active Substance: OLANZAPINE
     Indication: Depressive symptom
     Route: 065
     Dates: start: 2002
  2. CLOZAPINE [Suspect]
     Active Substance: CLOZAPINE
     Indication: Depressive symptom
     Dosage: 200 MG, DAILY
     Route: 065
     Dates: start: 2004
  3. CLOZAPINE [Suspect]
     Active Substance: CLOZAPINE
     Indication: Hallucination, auditory
     Dosage: 225 MG, DAILY
     Route: 065
     Dates: start: 201811
  4. BROTIZOLAM [Suspect]
     Active Substance: BROTIZOLAM
     Indication: Anxiety
     Dosage: UNK, UNKNOWN
     Route: 065
     Dates: start: 1990
  5. HALOPERIDOL [Suspect]
     Active Substance: HALOPERIDOL
     Indication: Anxiety
     Route: 065
     Dates: start: 1990, end: 2002
  6. HALOPERIDOL [Suspect]
     Active Substance: HALOPERIDOL
     Indication: Hallucination, auditory
     Dosage: 16 UNK, DAILY
     Route: 065
     Dates: start: 201811
  7. CITALOPRAM [Suspect]
     Active Substance: CITALOPRAM HYDROBROMIDE
     Indication: Depressive symptom
     Dates: start: 201811
  8. CITALOPRAM [Suspect]
     Active Substance: CITALOPRAM HYDROBROMIDE
     Dates: start: 2002
  9. BIPERIDEN [Suspect]
     Active Substance: BIPERIDEN
     Indication: Hallucination, auditory
     Route: 065
     Dates: start: 201811
  10. RIVOTRIL [Suspect]
     Active Substance: CLONAZEPAM
     Indication: Hallucination, auditory
     Dosage: 12 DOSAGE FORM, DAILY
     Route: 065
     Dates: start: 201811
  11. ALPRAZOLAM [Suspect]
     Active Substance: ALPRAZOLAM
     Indication: Anxiety
     Dosage: UNK, UNKNOWN
     Route: 065
     Dates: start: 1990
  12. LURASIDONE [Concomitant]
     Active Substance: LURASIDONE
     Dosage: UNK, UNKNOWN
     Route: 065

REACTIONS (6)
  - Therapy partial responder [Unknown]
  - Treatment noncompliance [Unknown]
  - Psychomotor retardation [Unknown]
  - Weight increased [Unknown]
  - Medication error [Unknown]
  - Sedation [Unknown]
